FAERS Safety Report 10021394 (Version 3)
Quarter: 2014Q2

REPORT INFORMATION
  Report Type: Not Available
  Country: US (occurrence: US)
  Receive Date: 20140319
  Receipt Date: 20140501
  Transmission Date: 20141212
  Serious: Yes (Other)
  Sender: FDA-Public Use
  Company Number: US-VIROPHARMA INCORPORATED-20140211CINRY5796

PATIENT
  Age: 57 Year
  Sex: Female
  Weight: 77.18 kg

DRUGS (5)
  1. CINRYZE (C1 ESTERASE INHIBITOR (HUMAN)) [Suspect]
     Indication: HEREDITARY ANGIOEDEMA
     Route: 042
     Dates: start: 2008
  2. CINRYZE (C1 ESTERASE INHIBITOR (HUMAN)) [Suspect]
     Indication: PROPHYLAXIS
  3. LIPITOR [Concomitant]
     Indication: BLOOD CHOLESTEROL INCREASED
     Dosage: UNKNOWN
     Route: 048
  4. VITAMIN D [Concomitant]
     Indication: VITAMIN D DEFICIENCY
     Route: 065
  5. VICODIN [Concomitant]
     Indication: PAIN
     Dosage: UNKNOWN
     Route: 048

REACTIONS (11)
  - Skin cancer [Not Recovered/Not Resolved]
  - Fall [Recovered/Resolved]
  - Hand fracture [Recovering/Resolving]
  - Influenza [Recovered/Resolved]
  - Pneumonia [Recovered/Resolved]
  - Hereditary angioedema [Recovered/Resolved]
  - Drug dose omission [Recovered/Resolved]
  - Cellulitis [Unknown]
  - Eyelid disorder [Unknown]
  - Blood urine present [Unknown]
  - Bronchitis [Unknown]
